FAERS Safety Report 6924196-2 (Version None)
Quarter: 2010Q3

REPORT INFORMATION
  Report Type: 
  Country: None (occurrence: None)
  Receive Date: 20100813
  Receipt Date: 20100803
  Transmission Date: 20110219
  Serious: Yes (Hospitalization, Other)
  Sender: FDA-Public Use
  Company Number: BR-ABBOTT-10P-020-0661937-00

PATIENT
  Sex: Male
  Weight: 100 kg

DRUGS (4)
  1. HUMIRA [Suspect]
     Indication: ANKYLOSING SPONDYLITIS
     Route: 058
     Dates: start: 20090501
  2. METHOTREXATE [Concomitant]
     Indication: ANKYLOSING SPONDYLITIS
     Route: 048
     Dates: start: 20080101
  3. NIMESULIDE [Concomitant]
     Indication: PLANTAR FASCIITIS
     Route: 048
     Dates: start: 20040101
  4. NIMESULIDE [Concomitant]
     Indication: TENDON DISORDER

REACTIONS (10)
  - ANKYLOSING SPONDYLITIS [None]
  - DIVERTICULITIS [None]
  - EMPHYSEMA [None]
  - ENTERITIS INFECTIOUS [None]
  - HERPES VIRUS INFECTION [None]
  - ILL-DEFINED DISORDER [None]
  - INTESTINAL POLYP [None]
  - MOBILITY DECREASED [None]
  - PLANTAR FASCIITIS [None]
  - TENDON DISORDER [None]
